FAERS Safety Report 4913810-9 (Version None)
Quarter: 2006Q1

REPORT INFORMATION
  Report Type: 
  Country: None (occurrence: None)
  Receive Date: 20060216
  Receipt Date: 20060207
  Transmission Date: 20060701
  Serious: Yes (Life-Threatening)
  Sender: FDA-Public Use
  Company Number: FR-AVENTIS-200610467FR

PATIENT
  Age: 1 Day
  Sex: Male

DRUGS (4)
  1. CORTANCYL [Suspect]
     Route: 064
  2. SECTRAL [Suspect]
     Indication: HYPERTENSION
     Route: 064
  3. LOVENOX [Suspect]
     Route: 064
  4. ASPEGIC [Suspect]
     Route: 064

REACTIONS (2)
  - DRUG EXPOSURE DURING PREGNANCY [None]
  - VENTRICULAR SEPTAL DEFECT [None]
